FAERS Safety Report 19304252 (Version 1)
Quarter: 2021Q2

REPORT INFORMATION
  Report Type: Spontaneous
  Country: JP (occurrence: JP)
  Receive Date: 20210525
  Receipt Date: 20210525
  Transmission Date: 20210717
  Serious: Yes (Other)
  Sender: FDA-Public Use
  Company Number: JP-PFIZER INC-2021542733

PATIENT

DRUGS (13)
  1. EMEND [Concomitant]
     Active Substance: APREPITANT
  2. ISOTONIC SODIUM CHLORIDE SOLUTION [Concomitant]
     Active Substance: SODIUM CHLORIDE
     Dosage: 50 ML (1 VIAL)
  3. OLANZAPINE. [Concomitant]
     Active Substance: OLANZAPINE
     Indication: PROPHYLAXIS OF NAUSEA AND VOMITING
     Dosage: 5 MG
  4. APREPITANT. [Concomitant]
     Active Substance: APREPITANT
     Dosage: 80 MG
  5. BEVACIZUMAB PFIZER [Suspect]
     Active Substance: BEVACIZUMAB
     Dosage: 370 MG, DAILY
     Route: 041
     Dates: start: 20210408
  6. GLUCOSE [Concomitant]
     Active Substance: DEXTROSE
     Dosage: 250 ML (1 BOTTLE)
  7. ISOTONIC SODIUM CHLORIDE SOLUTION [Concomitant]
     Active Substance: SODIUM CHLORIDE
     Dosage: 100 ML (1 VIAL)
  8. GRANISETRON [Concomitant]
     Active Substance: GRANISETRON
     Dosage: 1 MG (1 BAG)
  9. HEPARIN SODIUM. [Concomitant]
     Active Substance: HEPARIN SODIUM
     Dosage: 10 ML (1 SYRINGE)
  10. CAPECITABINE. [Concomitant]
     Active Substance: CAPECITABINE
  11. APREPITANT. [Concomitant]
     Active Substance: APREPITANT
     Indication: PROPHYLAXIS OF NAUSEA AND VOMITING
     Dosage: 125 MG
  12. DEXART [Concomitant]
     Active Substance: DEXAMETHASONE SODIUM PHOSPHATE
     Indication: PROPHYLAXIS OF NAUSEA AND VOMITING
     Dosage: 6.6 MG
  13. OXALIPLATIN. [Concomitant]
     Active Substance: OXALIPLATIN
     Dosage: 155 MG

REACTIONS (6)
  - Vomiting [Unknown]
  - Decreased appetite [Unknown]
  - Nausea [Unknown]
  - Hypoaesthesia [Unknown]
  - Stomatitis [Unknown]
  - Aspartate aminotransferase increased [Unknown]

NARRATIVE: CASE EVENT DATE: 20210408
